FAERS Safety Report 7513547-6 (Version None)
Quarter: 2011Q2

REPORT INFORMATION
  Report Type: 
  Country: None (occurrence: None)
  Receive Date: 20110531
  Receipt Date: 20110517
  Transmission Date: 20111010
  Serious: Yes (Other)
  Sender: FDA-Public Use
  Company Number: US-BAYER-201020251NA

PATIENT
  Age: 51 Year
  Sex: Female
  Weight: 83 kg

DRUGS (19)
  1. ESTRATEST [Concomitant]
  2. PROZAC [Concomitant]
     Dosage: 40 MG, QD
     Route: 048
  3. CEPHALEXIN [Concomitant]
     Indication: PRODUCT USED FOR UNKNOWN INDICATION
     Dosage: 250-500 MG
     Dates: start: 20080218
  4. TRAZODONE HCL [Concomitant]
  5. KLONOPIN [Concomitant]
     Dosage: 1 MG, BID
     Route: 048
  6. ZITHROMAX [Concomitant]
     Indication: BRONCHITIS
     Dosage: 250 MG, UNK
     Dates: start: 20080327, end: 20080401
  7. PROMETHAZINE W/ CODEINE [Concomitant]
     Indication: BRONCHITIS
     Dosage: 10/6.25MG/5ML EVERY 4 HOURS PRN
     Route: 048
     Dates: start: 20080327
  8. FERROUS SULFATE TAB [Concomitant]
     Dosage: 325 MG, TID
     Route: 048
  9. LORAZEPAM [Concomitant]
     Dosage: 0.5 MG, TID
     Route: 048
  10. YAZ [Suspect]
     Indication: MENOPAUSE
  11. FLEXERIL [Concomitant]
     Dosage: 10 MG, TID
     Route: 048
  12. YAZ [Suspect]
     Indication: CONTRACEPTION
     Dosage: UNK UNK, UNK
     Route: 048
     Dates: start: 20070401, end: 20080901
  13. YASMIN [Concomitant]
     Indication: MENOPAUSE
  14. SYNTHROID [Concomitant]
     Dosage: 75 ?G, QD
     Route: 048
  15. LORTAB [Concomitant]
     Indication: PAIN
     Dosage: UNK UNK, PRN
     Route: 048
  16. YASMIN [Concomitant]
     Indication: CONTRACEPTION
     Dosage: UNK
     Dates: start: 20031201, end: 20070401
  17. ZOLPIDEM [Concomitant]
     Indication: PRODUCT USED FOR UNKNOWN INDICATION
     Dosage: 10 MG, HS
     Route: 048
     Dates: start: 20080327
  18. XANAX [Concomitant]
  19. IBUPROFEN [Concomitant]
     Dosage: 800 MG, PRN
     Route: 048

REACTIONS (7)
  - THROMBOPHLEBITIS SUPERFICIAL [None]
  - ERYTHEMA [None]
  - DEEP VEIN THROMBOSIS [None]
  - INFLAMMATION [None]
  - CONTUSION [None]
  - OEDEMA PERIPHERAL [None]
  - SKIN WARM [None]
